FAERS Safety Report 6280452-5 (Version None)
Quarter: 2009Q3

REPORT INFORMATION
  Report Type: 
  Country: None (occurrence: None)
  Receive Date: 20090724
  Receipt Date: 20080527
  Transmission Date: 20100115
  Serious: No
  Sender: FDA-Public Use
  Company Number: A0731541A

PATIENT
  Sex: Female

DRUGS (6)
  1. AVANDIA [Suspect]
     Indication: DRUG USE FOR UNKNOWN INDICATION
     Route: 048
  2. GLUCOPHAGE [Suspect]
     Indication: DRUG USE FOR UNKNOWN INDICATION
     Route: 065
  3. GLIPIZIDE [Suspect]
     Indication: DRUG USE FOR UNKNOWN INDICATION
     Route: 048
  4. BYETTA [Suspect]
     Indication: DRUG USE FOR UNKNOWN INDICATION
     Route: 058
  5. FORTAMET [Suspect]
     Indication: DRUG USE FOR UNKNOWN INDICATION
     Route: 048
  6. JANUVIA [Suspect]

REACTIONS (3)
  - HYPERSENSITIVITY [None]
  - PRURITUS [None]
  - RASH [None]
